FAERS Safety Report 8247629-0 (Version None)
Quarter: 2012Q1

REPORT INFORMATION
  Report Type: 
  Country: None (occurrence: None)
  Receive Date: 20120330
  Receipt Date: 20120326
  Transmission Date: 20120608
  Serious: Yes (Other)
  Sender: FDA-Public Use
  Company Number: US-AMGEN-USASP2012019235

PATIENT
  Age: 31 Year
  Sex: Male

DRUGS (1)
  1. EPOGEN [Suspect]
     Indication: RENAL FAILURE CHRONIC
     Dosage: 31000 IU, QWK
     Route: 058
     Dates: start: 20090101

REACTIONS (1)
  - THERAPEUTIC RESPONSE DECREASED [None]
